FAERS Safety Report 10403378 (Version 1)
Quarter: 2014Q3

REPORT INFORMATION
  Report Type: Spontaneous
  Country: US (occurrence: None)
  Receive Date: 20140820
  Receipt Date: 20140820
  Transmission Date: 20150326
  Serious: No
  Sender: FDA-Public Use
  Company Number: None

PATIENT
  Age: 41 Year
  Sex: Female
  Weight: 70.31 kg

DRUGS (1)
  1. BACTRIM DS [Suspect]
     Active Substance: SULFAMETHOXAZOLE\TRIMETHOPRIM
     Indication: URINARY TRACT INFECTION
     Dosage: 1 TAB  TWICE DAILY TAKEN BY MOUTH
     Route: 048
     Dates: start: 20140806, end: 20140808

REACTIONS (11)
  - Balance disorder [None]
  - Dysstasia [None]
  - Feeling abnormal [None]
  - Asthenia [None]
  - Depression [None]
  - Anxiety [None]
  - Fatigue [None]
  - Glossodynia [None]
  - Urticaria [None]
  - Pruritus [None]
  - Eye pruritus [None]

NARRATIVE: CASE EVENT DATE: 20140808
